FAERS Safety Report 21948756 (Version 2)
Quarter: 2023Q1

REPORT INFORMATION
  Report Type: Spontaneous
  Country: TR (occurrence: TR)
  Receive Date: 20230203
  Receipt Date: 20230309
  Transmission Date: 20230417
  Serious: Yes (Hospitalization, Other)
  Sender: FDA-Public Use
  Company Number: None

PATIENT
  Age: 64 Year
  Sex: Male

DRUGS (14)
  1. PIPERACILLIN SODIUM\TAZOBACTAM SODIUM [Suspect]
     Active Substance: PIPERACILLIN SODIUM\TAZOBACTAM SODIUM
     Indication: Pneumonia aspiration
     Dosage: UNK
     Route: 065
     Dates: start: 2018
  2. PIPERACILLIN SODIUM\TAZOBACTAM SODIUM [Suspect]
     Active Substance: PIPERACILLIN SODIUM\TAZOBACTAM SODIUM
     Indication: Urinary tract infection
  3. PIPERACILLIN SODIUM\TAZOBACTAM SODIUM [Suspect]
     Active Substance: PIPERACILLIN SODIUM\TAZOBACTAM SODIUM
     Indication: Evidence based treatment
  4. MEROPENEM [Suspect]
     Active Substance: MEROPENEM
     Indication: Acinetobacter infection
     Dosage: 1 GRAM, Q8H
     Dates: start: 2018
  5. CLARITHROMYCIN [Suspect]
     Active Substance: CLARITHROMYCIN
     Indication: Pneumonia aspiration
     Dosage: UNK
     Route: 065
     Dates: start: 2018
  6. CLARITHROMYCIN [Suspect]
     Active Substance: CLARITHROMYCIN
     Indication: Urinary tract infection
  7. CLARITHROMYCIN [Suspect]
     Active Substance: CLARITHROMYCIN
     Indication: Evidence based treatment
  8. COLISTIN [Suspect]
     Active Substance: COLISTIN
     Indication: Escherichia infection
     Dosage: 150 MILLIGRAM, 2 ? 1/2 PER DAY
     Dates: start: 2018
  9. COLISTIN [Suspect]
     Active Substance: COLISTIN
     Indication: Bacterial infection
  10. TIGECYCLINE [Suspect]
     Active Substance: TIGECYCLINE
     Indication: Escherichia infection
     Dosage: 100 MILLIGRAM LOADING DOSE
     Route: 042
     Dates: start: 2018
  11. TIGECYCLINE [Suspect]
     Active Substance: TIGECYCLINE
     Indication: Acinetobacter infection
     Dosage: 50 MILLIGRAM, 12 HOUR
     Route: 042
     Dates: start: 2018
  12. COLISTIN SULFATE [Suspect]
     Active Substance: COLISTIN SULFATE
     Indication: Acinetobacter infection
     Dosage: COLOMYCIN 150 MG INHALER
  13. ENOXAPARIN [Concomitant]
     Active Substance: ENOXAPARIN
     Indication: Ischaemic stroke
     Dosage: 0.6 MILLILITER 12 HOUR, 0.6 CC 2X1/DAY
     Route: 065
  14. ENOXAPARIN [Concomitant]
     Active Substance: ENOXAPARIN
     Indication: Epilepsy

REACTIONS (5)
  - Trichosporon infection [Unknown]
  - Urinary tract infection fungal [Unknown]
  - Pyuria [Unknown]
  - Proteinuria [Unknown]
  - Haematuria [Unknown]

NARRATIVE: CASE EVENT DATE: 20180101
